FAERS Safety Report 20093225 (Version 2)
Quarter: 2021Q4

REPORT INFORMATION
  Report Type: Spontaneous
  Country: US (occurrence: US)
  Receive Date: 20211120
  Receipt Date: 20211126
  Transmission Date: 20220303
  Serious: Yes (Hospitalization)
  Sender: FDA-Public Use
  Company Number: US-SAMSUNG BIOEPIS-SB-2021-27248

PATIENT
  Sex: Male

DRUGS (6)
  1. INFLIXIMAB [Suspect]
     Active Substance: INFLIXIMAB
     Indication: Colitis
     Dosage: 5MG/KG/DOSE
     Route: 065
  2. PREDNISONE [Suspect]
     Active Substance: PREDNISONE
     Indication: Colitis
     Route: 048
  3. AMOXICILLIN [Concomitant]
     Active Substance: AMOXICILLIN
     Indication: Gastritis
     Dosage: UNKNOWN
     Route: 065
  4. CLARITHROMYCIN [Concomitant]
     Active Substance: CLARITHROMYCIN
     Indication: Gastritis
     Dosage: UNKNOWN
     Route: 065
  5. LANSOPRAZOLE [Concomitant]
     Active Substance: LANSOPRAZOLE
     Indication: Gastritis
     Dosage: UNKNOWN
     Route: 065
  6. POSACONAZOLE [Concomitant]
     Active Substance: POSACONAZOLE
     Indication: Product used for unknown indication
     Dosage: UNKNOWN
     Route: 065

REACTIONS (2)
  - Lymphadenitis fungal [Recovered/Resolved]
  - Off label use [Unknown]
